FAERS Safety Report 6713880-1 (Version None)
Quarter: 2010Q2

REPORT INFORMATION
  Report Type: 
  Country: None (occurrence: None)
  Receive Date: 20100506
  Receipt Date: 20100504
  Transmission Date: 20101027
  Serious: Yes (Other)
  Sender: FDA-Public Use
  Company Number: US-PFIZER INC-2006053318

PATIENT
  Sex: Female
  Weight: 63 kg

DRUGS (5)
  1. PROVERA [Suspect]
     Indication: HORMONE REPLACEMENT THERAPY
     Dosage: UNK
     Route: 048
     Dates: start: 19870101, end: 19910101
  2. PREMARIN [Suspect]
     Indication: HORMONE REPLACEMENT THERAPY
     Dosage: UNK
     Route: 065
     Dates: start: 19870101, end: 19910101
  3. THEO-DUR [Concomitant]
     Indication: DYSPNOEA
     Dosage: UNK
     Dates: start: 19890101
  4. COMBIVENT [Concomitant]
     Indication: DYSPNOEA
     Dosage: UNK
     Dates: start: 19890101
  5. ALBUTEROL [Concomitant]
     Indication: DYSPNOEA
     Dosage: UNK
     Dates: start: 19890101

REACTIONS (1)
  - BREAST CANCER [None]
